FAERS Safety Report 18117105 (Version 1)
Quarter: 2020Q3

REPORT INFORMATION
  Report Type: Spontaneous
  Country: US (occurrence: US)
  Receive Date: 20200805
  Receipt Date: 20200805
  Transmission Date: 20201103
  Serious: Yes (Hospitalization)
  Sender: FDA-Public Use
  Company Number: US-LUNDBECK-DKLU3019353

PATIENT
  Age: 40 Year
  Sex: Female

DRUGS (1)
  1. SABRIL [Suspect]
     Active Substance: VIGABATRIN
     Indication: STATUS EPILEPTICUS
     Dosage: OVERDOSE: 4000MG DAILY
     Route: 048

REACTIONS (2)
  - Status epilepticus [Unknown]
  - Prescribed overdose [Unknown]
